FAERS Safety Report 7763117-X (Version None)
Quarter: 2011Q3

REPORT INFORMATION
  Report Type: 
  Country: None (occurrence: None)
  Receive Date: 20110920
  Receipt Date: 20110909
  Transmission Date: 20111222
  Serious: Yes (Hospitalization)
  Sender: FDA-Public Use
  Company Number: PHHY2011US58411

PATIENT
  Sex: Female

DRUGS (16)
  1. CITALOPRAM HYDROBROMIDE [Concomitant]
     Dosage: UNK UKN, UNK
  2. PREDNISONE [Concomitant]
     Dosage: UNK UKN, UNK
  3. FERROUS SULFATE TAB [Concomitant]
     Dosage: UNK UKN, UNK
  4. LOSARTAN POTASSIUM [Concomitant]
     Dosage: UNK UKN, UNK
  5. FUROSEMIDE [Concomitant]
     Dosage: UNK UKN, UNK
  6. MYFORTIC [Suspect]
     Dosage: 360 MG
     Route: 048
  7. CLONIDINE [Concomitant]
     Dosage: UNK UKN, UNK
  8. OMEPRAZOLE [Concomitant]
     Dosage: UNK UKN, UNK
  9. CHOLECALCIFEROL [Concomitant]
     Dosage: UNK UKN, UNK
  10. AMLODIPINE [Concomitant]
     Dosage: UNK UKN, UNK
  11. SIMVASTATIN [Concomitant]
     Dosage: UNK UKN, UNK
  12. INSULIN [Concomitant]
     Dosage: UNK UKN, UNK
  13. MYFORTIC [Suspect]
     Indication: RENAL TRANSPLANT
     Dosage: 360 MG, TID
     Route: 048
     Dates: start: 20110513
  14. GABAPENTIN [Concomitant]
     Dosage: UNK UKN, UNK
  15. METOPROLOL TARTRATE [Concomitant]
     Dosage: UNK UKN, UNK
  16. MAGNESIUM OXIDE [Concomitant]
     Dosage: UNK UKN, UNK

REACTIONS (3)
  - RENAL DISORDER [None]
  - URINE ANALYSIS ABNORMAL [None]
  - RENAL FAILURE ACUTE [None]
